FAERS Safety Report 21798627 (Version 1)
Quarter: 2022Q4

REPORT INFORMATION
  Report Type: Spontaneous
  Country: BE (occurrence: BE)
  Receive Date: 20221230
  Receipt Date: 20221230
  Transmission Date: 20230113
  Serious: No
  Sender: FDA-Public Use
  Company Number: BE-ALKEM LABORATORIES LIMITED-BE-ALKEM-2022-11938

PATIENT
  Age: 54 Year
  Sex: Male

DRUGS (3)
  1. SIROLIMUS [Suspect]
     Active Substance: SIROLIMUS
     Indication: Malformation venous
     Dosage: 2 MILLIGRAM, QD (PER DAY)
     Route: 048
  2. SIROLIMUS [Suspect]
     Active Substance: SIROLIMUS
     Dosage: 3 MILLIGRAM, QD (PER DAY) (INCREASED DOSAGE)
     Route: 048
  3. SIROLIMUS [Suspect]
     Active Substance: SIROLIMUS
     Dosage: UNK (RE-INTRODUCTION)
     Route: 048

REACTIONS (2)
  - Pain [Not Recovered/Not Resolved]
  - Therapy partial responder [Unknown]
